FAERS Safety Report 20371018 (Version 1)
Quarter: 2022Q1

REPORT INFORMATION
  Report Type: Spontaneous
  Country: US (occurrence: US)
  Receive Date: 20220124
  Receipt Date: 20220124
  Transmission Date: 20220423
  Serious: No
  Sender: FDA-Public Use
  Company Number: US-PFIZER INC-2021523322

PATIENT
  Age: 77 Year
  Sex: Male
  Weight: 86.18 kg

DRUGS (5)
  1. RETACRIT [Suspect]
     Active Substance: EPOETIN ALFA-EPBX
     Indication: Myelofibrosis
     Dosage: 60000 IU, WEEKLY
     Dates: start: 202001
  2. DANAZOL [Concomitant]
     Active Substance: DANAZOL
     Indication: Myelofibrosis
     Dosage: 100 MG, 2X/DAY(MORNING AND 200 AT NIGHT.)
     Dates: start: 201901
  3. CALQUENCE [Concomitant]
     Active Substance: ACALABRUTINIB
     Indication: Mantle cell lymphoma
     Dosage: 100 MG, 1X/DAY
     Dates: start: 201712
  4. ALLOPURINOL [Concomitant]
     Active Substance: ALLOPURINOL
     Indication: Gout
     Dosage: 100 MG, 1X/DAY
  5. LASIX [Concomitant]
     Active Substance: FUROSEMIDE
     Dosage: 20 MG, 3X/DAY

REACTIONS (3)
  - Haemoglobin decreased [Not Recovered/Not Resolved]
  - Drug ineffective for unapproved indication [Unknown]
  - Off label use [Unknown]

NARRATIVE: CASE EVENT DATE: 20210101
